FAERS Safety Report 7647950-0 (Version None)
Quarter: 2011Q3

REPORT INFORMATION
  Report Type: 
  Country: None (occurrence: None)
  Receive Date: 20110801
  Receipt Date: 20110721
  Transmission Date: 20111222
  Serious: Yes (Hospitalization)
  Sender: FDA-Public Use
  Company Number: FR-GENZYME-THYR-1000470

PATIENT
  Sex: Male
  Weight: 89 kg

DRUGS (4)
  1. THYROGEN [Suspect]
     Dosage: 0.9 MG, QD
     Dates: start: 20110125, end: 20110126
  2. THYROGEN [Suspect]
     Indication: DIAGNOSTIC PROCEDURE
     Dosage: 0.9 MG, QD
     Dates: start: 20100706, end: 20100707
  3. LEVOTHYROXINE SODIUM [Concomitant]
     Indication: PRODUCT USED FOR UNKNOWN INDICATION
     Dosage: 175 MCG, QD
     Dates: end: 20100701
  4. LEVOTHYROXINE SODIUM [Concomitant]
     Dosage: 225 MCG, QD
     Dates: end: 20110101

REACTIONS (2)
  - RENAL COLIC [None]
  - NEPHROLITHIASIS [None]
